FAERS Safety Report 4611080-2 (Version None)
Quarter: 2005Q2

REPORT INFORMATION
  Report Type: 
  Country: None (occurrence: None)
  Receive Date: 20050314
  Receipt Date: 20041215
  Transmission Date: 20051028
  Serious: Yes (Hospitalization)
  Sender: FDA-Public Use
  Company Number: USA041286408

PATIENT
  Age: 56 Year
  Sex: Female

DRUGS (2)
  1. GEMZAR [Suspect]
     Dosage: 1250 MG
  2. RADIATION THERAPY [Concomitant]

REACTIONS (1)
  - FEBRILE NEUTROPENIA [None]
